FAERS Safety Report 14787918 (Version 1)
Quarter: 2018Q2

REPORT INFORMATION
  Report Type: Spontaneous
  Country: US (occurrence: US)
  Receive Date: 20180422
  Receipt Date: 20180422
  Transmission Date: 20180711
  Serious: No
  Sender: FDA-Public Use
  Company Number: US-JNJFOC-20180402557

PATIENT
  Age: 56 Year
  Sex: Male

DRUGS (5)
  1. ZYRTEC [Suspect]
     Active Substance: CETIRIZINE HYDROCHLORIDE
     Route: 065
  2. NEUTROGENA T SAL SHAMPOO [Concomitant]
     Indication: SEBORRHOEIC DERMATITIS
     Route: 065
     Dates: start: 201710
  3. NEUTROGENA T SAL SHAMPOO [Concomitant]
     Indication: FOLLICULITIS
     Route: 065
     Dates: start: 201710
  4. ZYRTEC [Suspect]
     Active Substance: CETIRIZINE HYDROCHLORIDE
     Indication: HYPERSENSITIVITY
     Route: 065
     Dates: start: 201711
  5. IBUPROFEN. [Concomitant]
     Active Substance: IBUPROFEN
     Indication: HYPERSENSITIVITY
     Route: 065
     Dates: start: 201711

REACTIONS (2)
  - Off label use [Unknown]
  - Product use in unapproved indication [Unknown]

NARRATIVE: CASE EVENT DATE: 201711
